FAERS Safety Report 10503981 (Version 1)
Quarter: 2014Q4

REPORT INFORMATION
  Report Type: Spontaneous
  Country: US (occurrence: None)
  Receive Date: 20141007
  Receipt Date: 20141007
  Transmission Date: 20150528
  Serious: Yes (Hospitalization)
  Sender: FDA-Public Use
  Company Number: None

PATIENT
  Age: 58 Year
  Sex: Female
  Weight: 54.9 kg

DRUGS (23)
  1. CHOLECALCIFEROL (VITAMIN D3) [Concomitant]
  2. DILTIAZEM (CARDIZEM CD) [Concomitant]
  3. FOLIC ACID (FOLATE) [Concomitant]
  4. RIVAROXABAN (XARELTO) [Concomitant]
  5. FLOMAX [Concomitant]
     Active Substance: TAMSULOSIN HYDROCHLORIDE
  6. CYCLOSPORINE. [Concomitant]
     Active Substance: CYCLOSPORINE
  7. OMEPRAZOLE (PRILOSEC) [Concomitant]
  8. ALBUTEROL (PROAIR HFA) [Concomitant]
  9. CALCIUM CARBONATE. [Concomitant]
     Active Substance: CALCIUM CARBONATE
  10. RANITIDINE [Concomitant]
     Active Substance: RANITIDINE\RANITIDINE HYDROCHLORIDE
  11. CLINDAMYCIN (CLEOCIN) [Concomitant]
  12. CYCLOSPORINE MODIFIED (GENGRAF) [Concomitant]
  13. HYDROCODONE-ACETAMINOPHEN (NORCO) [Concomitant]
  14. RIVAROXABAN 20MG [Suspect]
     Active Substance: RIVAROXABAN
     Indication: ATRIAL FIBRILLATION
     Route: 048
     Dates: start: 20140902, end: 20140918
  15. ACYCLOVIR (ZOVIRAX) [Concomitant]
  16. OXYBUTYNIN (DITROPAN XL) [Concomitant]
  17. NITROSTAT [Concomitant]
     Active Substance: NITROGLYCERIN
  18. PHENAZOPYRIDINE. [Concomitant]
     Active Substance: PHENAZOPYRIDINE
  19. PREDNISONE. [Concomitant]
     Active Substance: PREDNISONE
  20. SULFAMETHOXAZOLE-TRIMETHOPRIM (BACTRIM) [Concomitant]
  21. AZATHIOPRINE (IMURAN) [Concomitant]
  22. CYCLOBENZAPRINE (FLEXERIL) [Concomitant]
  23. LIDOCAINE. [Concomitant]
     Active Substance: LIDOCAINE

REACTIONS (4)
  - Haematuria [None]
  - Haemorrhage [None]
  - Haemoptysis [None]
  - Haemoglobin decreased [None]

NARRATIVE: CASE EVENT DATE: 20140919
